FAERS Safety Report 6682381-1 (Version None)
Quarter: 2010Q2

REPORT INFORMATION
  Report Type: 
  Country: None (occurrence: None)
  Receive Date: 20100415
  Receipt Date: 20100407
  Transmission Date: 20101027
  Serious: Yes (Other)
  Sender: FDA-Public Use
  Company Number: US-PFIZER INC-2010044771

PATIENT
  Sex: Male
  Weight: 77.098 kg

DRUGS (3)
  1. VIAGRA [Suspect]
     Indication: ERECTILE DYSFUNCTION
     Dosage: 50 MG, UNK
     Dates: start: 20080101
  2. VIAGRA [Suspect]
     Dosage: 75 MG, UNK
  3. ACETYLSALICYLIC ACID [Concomitant]
     Dosage: 81 MG,

REACTIONS (5)
  - DRUG INEFFECTIVE [None]
  - FATIGUE [None]
  - FLUSHING [None]
  - NASAL CONGESTION [None]
  - SURGERY [None]
